APPROVED DRUG PRODUCT: INDAPAMIDE
Active Ingredient: INDAPAMIDE
Strength: 1.25MG
Dosage Form/Route: TABLET;ORAL
Application: A074665 | Product #001
Applicant: TEVA PHARMACEUTICALS USA INC
Approved: Apr 4, 1997 | RLD: No | RS: No | Type: DISCN